FAERS Safety Report 13766149 (Version 1)
Quarter: 2017Q3

REPORT INFORMATION
  Report Type: Spontaneous
  Country: US (occurrence: US)
  Receive Date: 20170719
  Receipt Date: 20170719
  Transmission Date: 20171127
  Serious: No
  Sender: FDA-Public Use
  Company Number: US-ELI_LILLY_AND_COMPANY-US201707003885

PATIENT
  Sex: Female

DRUGS (4)
  1. LANTUS [Concomitant]
     Active Substance: INSULIN GLARGINE
     Indication: PRODUCT USED FOR UNKNOWN INDICATION
  2. HUMALOG [Suspect]
     Active Substance: INSULIN LISPRO
     Indication: TYPE 1 DIABETES MELLITUS
     Dosage: 1 U, DAILY
     Route: 058
     Dates: start: 2009
  3. HUMALOG [Suspect]
     Active Substance: INSULIN LISPRO
     Dosage: 1 U, DAILY
     Route: 058
     Dates: start: 20170605
  4. HUMALOG [Suspect]
     Active Substance: INSULIN LISPRO
     Dosage: 1 U, DAILY
     Route: 058
     Dates: start: 201705

REACTIONS (2)
  - Incorrect dosage administered [Unknown]
  - Blood glucose increased [Recovered/Resolved]
